FAERS Safety Report 9214081 (Version 1)
Quarter: 2013Q2

REPORT INFORMATION
  Report Type: Report from Study
  Country: US (occurrence: US)
  Receive Date: 20130405
  Receipt Date: 20130405
  Transmission Date: 20140414
  Serious: Yes (Hospitalization, Other)
  Sender: FDA-Public Use
  Company Number: US-ABBOTT-13P-163-1070263-00

PATIENT
  Age: 35 Year
  Sex: Female

DRUGS (3)
  1. HUMIRA [Suspect]
     Indication: CROHN^S DISEASE
     Dates: start: 2007
  2. HUMIRA [Suspect]
     Dates: start: 20121227
  3. HUMIRA [Suspect]

REACTIONS (14)
  - Fistula [Unknown]
  - Abscess [Unknown]
  - Dehydration [Unknown]
  - Crohn^s disease [Unknown]
  - Small intestinal resection [Unknown]
  - Drug ineffective [Unknown]
  - Influenza [Unknown]
  - Night sweats [Unknown]
  - Pyrexia [Unknown]
  - Diarrhoea [Unknown]
  - Nausea [Unknown]
  - Drug resistance [Unknown]
  - Anxiety [Unknown]
  - Depressed level of consciousness [Unknown]
